FAERS Safety Report 5086947-4 (Version None)
Quarter: 2006Q3

REPORT INFORMATION
  Report Type: 
  Country: None (occurrence: None)
  Receive Date: 20060821
  Receipt Date: 20060804
  Transmission Date: 20061208
  Serious: Yes (Other)
  Sender: FDA-Public Use
  Company Number: 2006AL002190

PATIENT
  Age: 59 Year
  Sex: Male

DRUGS (1)
  1. MIRTAZAPINE [Suspect]
     Dosage: PO
     Route: 048

REACTIONS (1)
  - ATRIOVENTRICULAR BLOCK FIRST DEGREE [None]
